FAERS Safety Report 4484621-6 (Version None)
Quarter: 2004Q3

REPORT INFORMATION
  Report Type: 
  Country: None (occurrence: None)
  Receive Date: 20040921
  Receipt Date: 20040326
  Transmission Date: 20050211
  Serious: Yes (Other)
  Sender: FDA-Public Use
  Company Number: 163-20785-04030708 (0)

PATIENT
  Age: 60 Year
  Sex: Male

DRUGS (21)
  1. THALOMID [Suspect]
     Indication: MULTIPLE MYELOMA
     Dosage: 200 MG TO 400 MG, DAILY, ORAL
     Route: 048
     Dates: start: 20030902, end: 20031113
  2. VINCRISTINE [Suspect]
     Indication: MULTIPLE MYELOMA
     Dates: start: 20030829, end: 20030829
  3. ADRIAMYCIN PFS [Suspect]
     Indication: MULTIPLE MYELOMA
     Dates: start: 20030829, end: 20030829
  4. DEXAMETHASONE [Suspect]
     Indication: MULTIPLE MYELOMA
     Dates: start: 20030829
  5. CYTOXAN [Suspect]
     Indication: MULTIPLE MYELOMA
     Dates: start: 20030926, end: 20030926
  6. ETOPOSIDE [Suspect]
     Indication: MULTIPLE MYELOMA
     Dates: start: 20030926, end: 20030926
  7. CISPLATIN [Suspect]
     Indication: MULTIPLE MYELOMA
     Dates: start: 20030926, end: 20030926
  8. LEXAPRO [Concomitant]
  9. CALCIUM [Concomitant]
  10. ACYCLOVIR [Concomitant]
  11. TEQUIN [Concomitant]
  12. ZANTAC [Concomitant]
  13. FOLATE (FOLATE SODIUM) [Concomitant]
  14. DIGOXIN [Concomitant]
  15. MULTIVITAMIN (MULTIVITAMINS) (TABLETS) [Concomitant]
  16. BEXTA (VALDECOXIB) [Concomitant]
  17. RYTHMOL [Concomitant]
  18. SENOKOT (SENNA FRUIT) (TABLETS) [Concomitant]
  19. FLOMAX [Concomitant]
  20. AREDIA [Concomitant]
  21. PROCRIT [Concomitant]

REACTIONS (1)
  - DEEP VEIN THROMBOSIS [None]
